FAERS Safety Report 4728247-5 (Version None)
Quarter: 2005Q3

REPORT INFORMATION
  Report Type: 
  Country: None (occurrence: None)
  Receive Date: 20050727
  Receipt Date: 20050713
  Transmission Date: 20060218
  Serious: Yes (Hospitalization)
  Sender: FDA-Public Use
  Company Number: 200507IM000301

PATIENT
  Age: 46 Year
  Sex: Female

DRUGS (2)
  1. INFERAX (INTERFERON ALFACON-1) [Suspect]
     Indication: HEPATITIS C
     Dosage: 9 UG, QD, SUBCUTANEOUS
     Route: 058
     Dates: start: 20050511, end: 20050706
  2. REBETOL [Suspect]
     Indication: HEPATITIS C
     Dosage: 1000 MG, QD, ORAL
     Route: 048
     Dates: start: 20050511, end: 20050706

REACTIONS (9)
  - ASPARTATE AMINOTRANSFERASE INCREASED [None]
  - COAGULOPATHY [None]
  - DRUG EFFECT DECREASED [None]
  - HYPERBILIRUBINAEMIA [None]
  - LABORATORY TEST ABNORMAL [None]
  - LEUKOPENIA [None]
  - PHARYNGEAL HAEMORRHAGE [None]
  - PROTHROMBIN TIME PROLONGED [None]
  - THROMBOCYTOPENIA [None]
